FAERS Safety Report 5170462-3 (Version None)
Quarter: 2006Q4

REPORT INFORMATION
  Report Type: 
  Country: None (occurrence: None)
  Receive Date: 20061204
  Receipt Date: 20061122
  Transmission Date: 20070319
  Serious: Yes (Other)
  Sender: FDA-Public Use
  Company Number: 2006144588

PATIENT
  Sex: Female

DRUGS (1)
  1. DEPO-PROVERA SUSPENSION, STERILE (MEDROXYPROGSTERONE ACETATE) [Suspect]
     Dosage: (LAST INJECTION), INTRAMUSCULAR
     Route: 030
     Dates: start: 20060101, end: 20060101

REACTIONS (2)
  - SERUM SICKNESS [None]
  - VASCULITIS [None]
